FAERS Safety Report 24610010 (Version 2)
Quarter: 2024Q4

REPORT INFORMATION
  Report Type: Spontaneous
  Country: FR (occurrence: FR)
  Receive Date: 20241112
  Receipt Date: 20241220
  Transmission Date: 20250115
  Serious: Yes (Other)
  Sender: SK LIFE SCIENCE
  Company Number: FR-ACRAF SpA-2024-036241

PATIENT

DRUGS (6)
  1. XCOPRI [Suspect]
     Active Substance: CENOBAMATE
     Indication: Off label use
     Dosage: 12.5 MG DAILY (12.5 MG,1 IN 1 D)
     Route: 048
     Dates: start: 20241015
  2. XCOPRI [Suspect]
     Active Substance: CENOBAMATE
     Dosage: 25 MG DAILY (25 MG,1 IN 1 D)
     Route: 048
     Dates: end: 20241109
  3. VIMPAT [Concomitant]
     Active Substance: LACOSAMIDE
     Indication: Product used for unknown indication
     Dosage: UNK
     Route: 065
     Dates: start: 20241015
  4. VALPROIC ACID [Concomitant]
     Active Substance: VALPROIC ACID
     Indication: Epilepsy
     Dosage: UNK
     Route: 065
  5. CLOBAZAM [Concomitant]
     Active Substance: CLOBAZAM
     Indication: Epilepsy
     Dosage: UNK
     Route: 065
  6. LORMETAZEPAM [Concomitant]
     Active Substance: LORMETAZEPAM
     Indication: Epilepsy
     Dosage: UNK
     Route: 065

REACTIONS (51)
  - Swelling of eyelid [Unknown]
  - Eye movement disorder [Unknown]
  - Off label use [Unknown]
  - Nightmare [Unknown]
  - Gastrointestinal pain [Unknown]
  - Oropharyngeal pain [Unknown]
  - Bradyphrenia [Unknown]
  - Hypoaesthesia [Unknown]
  - Abdominal distension [Unknown]
  - Immunodeficiency [Unknown]
  - Erythema [Unknown]
  - Influenza like illness [Unknown]
  - Feeding disorder [Unknown]
  - Rebound effect [Unknown]
  - Food craving [Unknown]
  - Lymphadenopathy [Unknown]
  - Discomfort [Unknown]
  - Mydriasis [Unknown]
  - Emotional disorder [Unknown]
  - Hypersensitivity [Unknown]
  - Apathy [Unknown]
  - Drug interaction [Recovering/Resolving]
  - Muscle spasms [Recovering/Resolving]
  - Tinnitus [Unknown]
  - Genital hypoaesthesia [Unknown]
  - Head discomfort [Unknown]
  - Hypotonia [Unknown]
  - Petit mal epilepsy [Unknown]
  - Off label use [Recovering/Resolving]
  - Insomnia [Unknown]
  - Abdominal pain upper [Unknown]
  - Headache [Unknown]
  - Dizziness [Unknown]
  - Confusional state [Unknown]
  - Depressed mood [Unknown]
  - Vomiting [Unknown]
  - Balance disorder [Unknown]
  - Gait disturbance [Unknown]
  - Dry mouth [Unknown]
  - Irritability [Unknown]
  - Aphasia [Unknown]
  - Pruritus [Unknown]
  - Fatigue [Unknown]
  - Depression [Unknown]
  - Vision blurred [Unknown]
  - Somnolence [Unknown]
  - Fatigue [Unknown]
  - Decreased appetite [Unknown]
  - Disturbance in attention [Unknown]
  - Rash [Unknown]
  - Asthenia [Unknown]

NARRATIVE: CASE EVENT DATE: 20241016
